FAERS Safety Report 8189331-X (Version None)
Quarter: 2012Q1

REPORT INFORMATION
  Report Type: 
  Country: None (occurrence: None)
  Receive Date: 20120302
  Receipt Date: 20120215
  Transmission Date: 20120608
  Serious: Yes (Other)
  Sender: FDA-Public Use
  Company Number: E2B_7113260

PATIENT
  Age: 72 Year
  Sex: Female
  Weight: 65 kg

DRUGS (12)
  1. NITRADISC 5 (GLYCERYL TRINITRATE) (TRANSDERMAL PATCH) (NITROGLYCERIN) [Concomitant]
  2. BROMALEX (BROMAZEPAM) (BROMAZEPAM) [Concomitant]
  3. COAPROVEL (KARVEA HCT) (HYDROCHLOROTHIAZIDE, IRBESARTAN) [Concomitant]
  4. CRESTOR [Concomitant]
  5. GLUCOPHAGE (METFORMIN) (METFORMIN HYDROCHLORIDE) [Concomitant]
  6. ALLOPURINOL [Concomitant]
  7. CONCOR (BISOPROLOL FUMARATE) (BISOPROLOL HEMIFUMARATE) [Concomitant]
  8. LEVOTHYROXINE SODIUM [Suspect]
     Indication: HYPOTHYROIDISM
     Dosage: 12.5 MCG (12.5 MCG, 1 IN 1 D) ORAL
     Route: 048
     Dates: start: 20120122
  9. NITROMINT (GLYCERYL TRINITRATE) (NITROGLYCERIN) [Concomitant]
  10. SPIRIVA RESPIMAT (TIOTROPIUM BROMIDE) (NEBULISER SOLUTION) (TIOTROPIUM [Concomitant]
  11. ADALAT CR (NIFEDIPINE) (PROLONGED-RELEASE  ) (NIFEDIPINE) [Concomitant]
  12. TRYPTIZOL (AMITRIPTYLINE HYDROCHLORIDE) (AMITRIPTYLINE HYDROCHLORIDE) [Concomitant]

REACTIONS (2)
  - TACHYCARDIA [None]
  - ANGINA PECTORIS [None]
